FAERS Safety Report 5400455-X (Version None)
Quarter: 2007Q3

REPORT INFORMATION
  Report Type: 
  Country: None (occurrence: None)
  Receive Date: 20070725
  Receipt Date: 20070712
  Transmission Date: 20080115
  Serious: Yes (Other)
  Sender: FDA-Public Use
  Company Number: 16869

PATIENT
  Age: 20 Year
  Sex: Male

DRUGS (5)
  1. METHOTREXATE SODIUM [Suspect]
     Indication: JUVENILE ARTHRITIS
     Dosage: 20 MG WEEKLY
  2. PREDNISOLONE [Suspect]
     Indication: JUVENILE ARTHRITIS
     Dosage: 20 MG QD
  3. PREDNISOLONE [Suspect]
     Indication: JUVENILE ARTHRITIS
     Dosage: 5 MG QD PO
     Route: 048
  4. MEROPENEM [Concomitant]
  5. CLARITHROMYCIN [Concomitant]

REACTIONS (13)
  - ATELECTASIS [None]
  - CARDIAC FAILURE [None]
  - ELECTROCARDIOGRAM T WAVE INVERSION [None]
  - GENERAL PHYSICAL HEALTH DETERIORATION [None]
  - HEART SOUNDS ABNORMAL [None]
  - LUNG CONSOLIDATION [None]
  - MYOPERICARDITIS [None]
  - NEUTROPHILIA [None]
  - NO THERAPEUTIC RESPONSE [None]
  - PLEURAL EFFUSION [None]
  - PNEUMONIA BACTERIAL [None]
  - SINUS TACHYCARDIA [None]
  - SPLENOMEGALY [None]
